FAERS Safety Report 21712641 (Version 1)
Quarter: 2022Q4

REPORT INFORMATION
  Report Type: Spontaneous
  Country: CN (occurrence: CN)
  Receive Date: 20221212
  Receipt Date: 20221212
  Transmission Date: 20230113
  Serious: Yes (Other)
  Sender: FDA-Public Use
  Company Number: CN-MYLANLABS-2022M1136421

PATIENT
  Age: 78 Year
  Sex: Male
  Weight: 50 kg

DRUGS (4)
  1. LIPITOR [Suspect]
     Active Substance: ATORVASTATIN CALCIUM
     Indication: Arteriosclerosis
     Dosage: 20 MILLIGRAM, QD
     Route: 048
     Dates: start: 20221004, end: 20221128
  2. ASPIRIN [Suspect]
     Active Substance: ASPIRIN
     Indication: Thrombosis prophylaxis
     Dosage: 100 MILLIGRAM, QD
     Route: 048
     Dates: start: 20221004, end: 20221128
  3. PIRACETAM [Concomitant]
     Active Substance: PIRACETAM
     Indication: Neurological symptom
     Dosage: 1.6 GRAM, TID
     Route: 048
     Dates: start: 20221004, end: 20221128
  4. Hybutimibe [Concomitant]
     Indication: Blood cholesterol abnormal
     Dosage: 20 MILLIGRAM, QD
     Route: 048
     Dates: start: 20221004, end: 20221128

REACTIONS (2)
  - Haematuria [Recovering/Resolving]
  - Hepatic enzyme increased [Recovering/Resolving]

NARRATIVE: CASE EVENT DATE: 20221128
